FAERS Safety Report 8313840-3 (Version None)
Quarter: 2012Q2

REPORT INFORMATION
  Report Type: 
  Country: None (occurrence: None)
  Receive Date: 20120426
  Receipt Date: 20120418
  Transmission Date: 20120825
  Serious: Yes (Hospitalization)
  Sender: FDA-Public Use
  Company Number: US-BAYER-2011-074995

PATIENT
  Age: 50 Year
  Sex: Female
  Weight: 58.957 kg

DRUGS (9)
  1. KLONOPIN [Concomitant]
     Dosage: 1 MG, BID
     Route: 048
  2. MULTI-VITAMIN [Concomitant]
     Dosage: 1 TAB DAILY
  3. CICLESONIDE [Concomitant]
     Dosage: 2 SPRAYS DAILY
     Route: 045
  4. CALCIUM VIT D [Concomitant]
     Dosage: 600 MG, BID
     Route: 048
  5. YAZ [Suspect]
     Indication: PREMENSTRUAL SYNDROME
     Dosage: UNK
     Dates: start: 20090801, end: 20100801
  6. TREXIMET [Concomitant]
     Indication: MIGRAINE
     Dosage: UNK UNK, PRN
     Route: 048
  7. ZOLOFT [Concomitant]
     Dosage: 50 MG, QD
     Route: 048
  8. FLONASE [Concomitant]
     Dosage: 1 SPRAY
     Route: 045
  9. INDERAL [Concomitant]
     Indication: MIGRAINE
     Dosage: UNK
     Dates: start: 20010101

REACTIONS (3)
  - PULMONARY EMBOLISM [None]
  - DEEP VEIN THROMBOSIS [None]
  - INJURY [None]
